FAERS Safety Report 10504535 (Version 1)
Quarter: 2014Q3

REPORT INFORMATION
  Report Type: Spontaneous
  Country: US (occurrence: None)
  Receive Date: 20140912
  Receipt Date: 20140912
  Transmission Date: 20150326
  Serious: Yes (Other)
  Sender: FDA-Public Use
  Company Number: 1000053308

PATIENT
  Age: 69 Year
  Sex: Male

DRUGS (1)
  1. DALIRESP [Suspect]
     Active Substance: ROFLUMILAST

REACTIONS (5)
  - Diarrhoea [None]
  - Weight increased [None]
  - Insomnia [None]
  - Weight decreased [None]
  - Decreased appetite [None]

NARRATIVE: CASE EVENT DATE: 2013
